FAERS Safety Report 10058419 (Version 1)
Quarter: 2014Q2

REPORT INFORMATION
  Report Type: Spontaneous
  Country: GB (occurrence: GB)
  Receive Date: 20140404
  Receipt Date: 20140404
  Transmission Date: 20141212
  Serious: Yes (Other)
  Sender: FDA-Public Use
  Company Number: PHHY2014GB038198

PATIENT
  Age: 7 Year
  Sex: Male
  Weight: 25 kg

DRUGS (2)
  1. METHYLPHENIDATE [Suspect]
     Dosage: 10 MG, BID
     Route: 048
     Dates: start: 20130601
  2. CIRCADIN [Concomitant]
     Dosage: 2 MG, QD AT NIGHT
     Route: 048

REACTIONS (2)
  - Neurological examination abnormal [Not Recovered/Not Resolved]
  - Tic [Not Recovered/Not Resolved]
